FAERS Safety Report 22360885 (Version 2)
Quarter: 2023Q2

REPORT INFORMATION
  Report Type: Other
  Country: GR (occurrence: None)
  Receive Date: 20230524
  Receipt Date: 20230601
  Transmission Date: 20230721
  Serious: Yes (Other)
  Sender: FDA-Public Use
  Company Number: GR-AMGEN-GRCSP2023081973

PATIENT
  Age: 43 Year
  Sex: Male

DRUGS (8)
  1. BEVACIZUMAB [Suspect]
     Active Substance: BEVACIZUMAB
     Indication: Adenocarcinoma of colon
     Route: 065
  2. CAPECITABINE [Concomitant]
     Active Substance: CAPECITABINE
     Indication: Adenocarcinoma of colon
     Dosage: UNK
     Route: 048
     Dates: start: 202012
  3. TRIFLURIDINE [Concomitant]
     Active Substance: TRIFLURIDINE
  4. AFLIBERCEPT [Concomitant]
     Active Substance: AFLIBERCEPT
  5. TIPIRACIL [Concomitant]
     Active Substance: TIPIRACIL
  6. LEUCOVORIN [Concomitant]
     Active Substance: LEUCOVORIN
     Indication: Adenocarcinoma of colon
  7. IRINOTECAN [Concomitant]
     Active Substance: IRINOTECAN
  8. FLUOROURACIL\IRINOTECAN\LEUCOVORIN [Concomitant]
     Active Substance: FLUOROURACIL\IRINOTECAN\LEUCOVORIN
     Indication: Adenocarcinoma of colon
     Dates: start: 2020

REACTIONS (1)
  - Adenocarcinoma of colon [Unknown]
